FAERS Safety Report 5407352-4 (Version None)
Quarter: 2007Q3

REPORT INFORMATION
  Report Type: 
  Country: None (occurrence: None)
  Receive Date: 20070802
  Receipt Date: 20070726
  Transmission Date: 20080115
  Serious: Yes (Hospitalization)
  Sender: FDA-Public Use
  Company Number: 2007SP015237

PATIENT
  Age: 49 Year
  Sex: Female

DRUGS (4)
  1. DESLORATADINE [Suspect]
     Indication: DRUG USE FOR UNKNOWN INDICATION
     Dosage: 1 DF;QD;PO
     Route: 048
     Dates: start: 20070504
  2. NORFLOXACIN [Suspect]
     Dosage: 400 MG;BID;PO
     Route: 048
     Dates: start: 20070504, end: 20070511
  3. SPASFON (SPASFON) [Suspect]
     Dosage: 2 DF;TID;PO
     Route: 048
     Dates: start: 20070504
  4. HELLICIDINE (NO PREF. NAME) [Suspect]
     Dosage: 1 DF;TID;PO
     Route: 048
     Dates: start: 20070504

REACTIONS (2)
  - TENDON RUPTURE [None]
  - TENDONITIS [None]
